FAERS Safety Report 17744324 (Version 2)
Quarter: 2020Q4

REPORT INFORMATION
  Report Type: Report from Study
  Country: GT (occurrence: GT)
  Receive Date: 20200505
  Receipt Date: 20201127
  Transmission Date: 20210113
  Serious: Yes (Other)
  Sender: FDA-Public Use
  Company Number: GT-SA-2019SA276909

PATIENT

DRUGS (2)
  1. LARONIDASE [Suspect]
     Active Substance: LARONIDASE
     Dosage: 3 DF, QW
     Route: 042
  2. LARONIDASE [Suspect]
     Active Substance: LARONIDASE
     Indication: MUCOPOLYSACCHARIDOSIS I
     Dosage: 3 DF, QOW
     Route: 041

REACTIONS (11)
  - Peripheral swelling [Recovering/Resolving]
  - Eye movement disorder [Recovered/Resolved]
  - Skin discolouration [Recovered/Resolved]
  - Somnolence [Recovered/Resolved]
  - Dyspnoea [Recovering/Resolving]
  - Cough [Recovering/Resolving]
  - Off label use [Unknown]
  - Seizure [Recovered/Resolved]
  - Nasal congestion [Recovering/Resolving]
  - Product dose omission issue [Unknown]
  - Eating disorder [Recovered/Resolved]

NARRATIVE: CASE EVENT DATE: 20190915
